FAERS Safety Report 10751196 (Version 2)
Quarter: 2015Q2

REPORT INFORMATION
  Report Type: Spontaneous
  Country: US (occurrence: US)
  Receive Date: 20150130
  Receipt Date: 20150426
  Transmission Date: 20150821
  Serious: No
  Sender: FDA-Public Use
  Company Number: US-009507513-1501USA011061

PATIENT
  Age: 21 Year
  Sex: Female
  Weight: 92.97 kg

DRUGS (1)
  1. NEXPLANON [Suspect]
     Active Substance: ETONOGESTREL
     Indication: CONTRACEPTION
     Dosage: 1 ROD EVERY THREE YEARS
     Route: 059
     Dates: start: 20150108

REACTIONS (5)
  - Device difficult to use [Recovered/Resolved]
  - Application site discomfort [Recovering/Resolving]
  - Implant site pain [Recovering/Resolving]
  - Product quality issue [Unknown]
  - Implant site bruising [Recovering/Resolving]

NARRATIVE: CASE EVENT DATE: 20150108
